FAERS Safety Report 8053572-2 (Version None)
Quarter: 2012Q1

REPORT INFORMATION
  Report Type: 
  Country: None (occurrence: None)
  Receive Date: 20120118
  Receipt Date: 20120109
  Transmission Date: 20120608
  Serious: Yes (Death)
  Sender: FDA-Public Use
  Company Number: GB-MERCK-1112GBR00082

PATIENT
  Sex: Female

DRUGS (1)
  1. SINEMET [Suspect]
     Route: 048

REACTIONS (2)
  - DYSPHAGIA [None]
  - DEATH [None]
